FAERS Safety Report 6666796-3 (Version None)
Quarter: 2010Q2

REPORT INFORMATION
  Report Type: 
  Country: None (occurrence: None)
  Receive Date: 20100405
  Receipt Date: 20100323
  Transmission Date: 20101027
  Serious: Yes (Other)
  Sender: FDA-Public Use
  Company Number: FR-JNJFOC-20100207731

PATIENT
  Age: 63 Year
  Sex: Male

DRUGS (8)
  1. TAVANIC [Suspect]
     Indication: BRONCHOPNEUMOPATHY
     Route: 048
  2. SINTROM [Suspect]
     Indication: ARRHYTHMIA
     Dosage: 1.5 UNITS
     Route: 048
  3. AMIODARONE HCL [Concomitant]
     Route: 065
  4. CARDENSIEL [Concomitant]
     Route: 065
  5. ALDACTAZINE [Concomitant]
     Route: 065
  6. DIAMICRON [Concomitant]
     Route: 065
  7. DIMETANE [Concomitant]
     Route: 065
  8. DOLIPRANE [Concomitant]
     Route: 065

REACTIONS (2)
  - CYTOLYTIC HEPATITIS [None]
  - HEPATOMEGALY [None]
